FAERS Safety Report 23976962 (Version 2)
Quarter: 2024Q3

REPORT INFORMATION
  Report Type: Spontaneous
  Country: US (occurrence: US)
  Receive Date: 20240614
  Receipt Date: 20240909
  Transmission Date: 20241016
  Serious: No
  Sender: PFIZER
  Company Number: US-PFIZER INC-PV202400078009

PATIENT
  Age: 74 Year
  Sex: Female
  Weight: 57.15 kg

DRUGS (2)
  1. IBRANCE [Suspect]
     Active Substance: PALBOCICLIB
     Indication: Breast cancer stage IV
     Dosage: ONCE A DAY FOR 3 WEEKS AND OFF ONE WEEK
     Route: 048
     Dates: start: 2020
  2. ANASTROZOLE [Concomitant]
     Active Substance: ANASTROZOLE
     Indication: Breast cancer
     Dosage: 1 MG, 1X/DAY
     Route: 048

REACTIONS (2)
  - Hypoacusis [Not Recovered/Not Resolved]
  - Condition aggravated [Not Recovered/Not Resolved]
